FAERS Safety Report 12245348 (Version 1)
Quarter: 2016Q2

REPORT INFORMATION
  Report Type: Spontaneous
  Country: US (occurrence: None)
  Receive Date: 20160406
  Receipt Date: 20160406
  Transmission Date: 20160815
  Serious: Yes (Other)
  Sender: FDA-Public Use
  Company Number: None

PATIENT
  Age: 36 Year
  Sex: Female
  Weight: 77.11 kg

DRUGS (4)
  1. BENZACLIN [Concomitant]
     Active Substance: BENZOYL PEROXIDE\CLINDAMYCIN PHOSPHATE
  2. HERBAL TEAS (WHITE, GREEN, OOLONG, ELDERBERRY, DANDILION) [Concomitant]
  3. WHEY AND CASEIN PROTIEN POWDERS [Concomitant]
  4. SPIRONOLACTONE, 25 MG [Suspect]
     Active Substance: SPIRONOLACTONE
     Indication: ACNE
     Dosage: IN THE MORNING TAKEN BY MOUTH
     Route: 048
     Dates: start: 20141010, end: 20160405

REACTIONS (1)
  - Breast cancer stage III [None]

NARRATIVE: CASE EVENT DATE: 20160322
